FAERS Safety Report 9167321 (Version 1)
Quarter: 2013Q1

REPORT INFORMATION
  Report Type: Spontaneous
  Country: GB (occurrence: None)
  Receive Date: 20130305
  Receipt Date: 20130305
  Transmission Date: 20140127
  Serious: Yes (Life-Threatening)
  Sender: FDA-Public Use
  Company Number: 2013SUN00208

PATIENT
  Age: 79 Year
  Sex: Male

DRUGS (5)
  1. OLANZAPINE [Suspect]
     Dosage: 15 MG, ONCE PER DAY
  2. LITHIUM (LITHIUM) UNKNOWN [Suspect]
     Dosage: 600 MG, ONCE PER DAY
  3. TRAZODONE (TRAZODONE) [Suspect]
     Dosage: 100 MG, BID
  4. VENLAFAXINE HYDROCHLORIDE [Suspect]
     Dosage: 225 MG, ONCE PER DAY
  5. BUSPIRONE (BUSPIRONE) [Concomitant]

REACTIONS (1)
  - Ventricular tachyarrhythmia [None]
